FAERS Safety Report 14051928 (Version 2)
Quarter: 2017Q4

REPORT INFORMATION
  Report Type: Report from Study
  Country: IT (occurrence: GB)
  Receive Date: 20171005
  Receipt Date: 20171030
  Transmission Date: 20180321
  Serious: Yes (Other)
  Sender: FDA-Public Use
  Company Number: GB-TEVA-810859ACC

PATIENT
  Age: 36 Year
  Sex: Female

DRUGS (2)
  1. CERELLE (CONSILIENT HEALTH LTD) [Concomitant]
     Route: 065
  2. COPAXONE [Suspect]
     Active Substance: GLATIRAMER ACETATE
     Route: 058
     Dates: start: 20170914

REACTIONS (5)
  - Dyspnoea [Unknown]
  - Dizziness [Unknown]
  - Protrusion tongue [Unknown]
  - Seizure [Recovered/Resolved]
  - Wrong technique in product usage process [Unknown]

NARRATIVE: CASE EVENT DATE: 20170916
